FAERS Safety Report 18147978 (Version 1)
Quarter: 2020Q3

REPORT INFORMATION
  Report Type: Spontaneous
  Country: KR (occurrence: KR)
  Receive Date: 20200813
  Receipt Date: 20200813
  Transmission Date: 20201103
  Serious: Yes (Other)
  Sender: FDA-Public Use
  Company Number: KR-FRESENIUS KABI-FK202008325

PATIENT
  Age: 51 Year
  Sex: Female

DRUGS (8)
  1. LIDOCAINE / EPINEPHRINE 2% (MANUFACTURER UNKNOWN) [Suspect]
     Active Substance: EPINEPHRINE\LIDOCAINE
     Indication: HAEMOSTASIS
     Route: 050
  2. SEVOFLURANE. [Concomitant]
     Active Substance: SEVOFLURANE
     Indication: ANAESTHESIA
     Dosage: 1 TO 2 VOL PERCENT
     Route: 065
  3. REMIFENTANIL [Concomitant]
     Active Substance: REMIFENTANIL
     Indication: BISPECTRAL INDEX
     Route: 040
  4. LIDOCAINE / EPINEPHRINE 2% (MANUFACTURER UNKNOWN) [Suspect]
     Active Substance: EPINEPHRINE\LIDOCAINE
     Route: 050
  5. ESMOLOL [Suspect]
     Active Substance: ESMOLOL HYDROCHLORIDE
     Indication: HYPERTENSION
     Route: 065
  6. SEVOFLURANE. [Concomitant]
     Active Substance: SEVOFLURANE
     Dosage: 4 VOL PERCENT
     Route: 065
  7. ESMOLOL [Suspect]
     Active Substance: ESMOLOL HYDROCHLORIDE
     Indication: SINUS TACHYCARDIA
     Route: 065
  8. REMIFENTANIL [Concomitant]
     Active Substance: REMIFENTANIL
     Dosage: UNKNOWN
     Route: 065

REACTIONS (3)
  - Hypertension [Recovered/Resolved]
  - Tachycardia [Recovered/Resolved]
  - Stress cardiomyopathy [Recovered/Resolved]
